FAERS Safety Report 8533972-4 (Version None)
Quarter: 2012Q3

REPORT INFORMATION
  Report Type: 
  Country: None (occurrence: None)
  Receive Date: 20120705
  Receipt Date: 20120619
  Transmission Date: 20120928
  Serious: Yes (Other)
  Sender: FDA-Public Use
  Company Number: 2012032704

PATIENT
  Sex: Female

DRUGS (1)
  1. MONOCLATE-P [Suspect]
     Indication: VON WILLEBRAND'S DISEASE
     Dosage: INTRAVENOUS
     Route: 042

REACTIONS (1)
  - VON WILLEBRAND'S FACTOR ANTIBODY POSITIVE [None]
